FAERS Safety Report 4463781-7 (Version None)
Quarter: 2004Q3

REPORT INFORMATION
  Report Type: 
  Country: None (occurrence: None)
  Receive Date: 20040929
  Receipt Date: 20040916
  Transmission Date: 20050211
  Serious: No
  Sender: FDA-Public Use
  Company Number: 04H-150-0273580-00

PATIENT

DRUGS (3)
  1. MORPHINE SULFATE INJ [Suspect]
     Indication: MEDICATION ERROR
     Dosage: EPIDURAL
     Route: 008
  2. MORPHINE SULFATE INJ [Suspect]
     Indication: PAIN MANAGEMENT
     Dosage: EPIDURAL
     Route: 008
  3. HYOSCINE HBR HYT [Suspect]
     Dosage: EPIDURAL
     Route: 008

REACTIONS (2)
  - MEDICATION ERROR [None]
  - NERVOUS SYSTEM DISORDER [None]
